FAERS Safety Report 17861112 (Version 2)
Quarter: 2021Q2

REPORT INFORMATION
  Report Type: Spontaneous
  Country: CA (occurrence: CA)
  Receive Date: 20200604
  Receipt Date: 20210422
  Transmission Date: 20210717
  Serious: Yes (Other)
  Sender: FDA-Public Use
  Company Number: CA-ELI_LILLY_AND_COMPANY-CA202005009273

PATIENT
  Age: 40 Year
  Sex: Female
  Weight: 54 kg

DRUGS (3)
  1. VOLIBRIS [Suspect]
     Active Substance: AMBRISENTAN
     Indication: PULMONARY ARTERIAL HYPERTENSION
     Dosage: UNK UNK, UNKNOWN
     Route: 065
     Dates: end: 20190916
  2. ADCIRCA [Suspect]
     Active Substance: TADALAFIL
     Indication: PULMONARY ARTERIAL HYPERTENSION
     Dosage: 40 MG, DAILY
     Route: 065
     Dates: start: 20120501
  3. EPOPROSTENOL. [Concomitant]
     Active Substance: EPOPROSTENOL
     Indication: PRODUCT USED FOR UNKNOWN INDICATION

REACTIONS (2)
  - Thrombocytopenia [Unknown]
  - Illness [Unknown]
